FAERS Safety Report 18547568 (Version 4)
Quarter: 2022Q4

REPORT INFORMATION
  Report Type: Report from Study
  Country: FR (occurrence: FR)
  Receive Date: 20201125
  Receipt Date: 20221208
  Transmission Date: 20230113
  Serious: Yes (Hospitalization, Other)
  Sender: FDA-Public Use
  Company Number: FR-TAKEDA-2020TUS044451

PATIENT
  Age: 10 Year
  Sex: Male

DRUGS (12)
  1. TEDUGLUTIDE [Suspect]
     Active Substance: TEDUGLUTIDE
     Indication: Short-bowel syndrome
     Dosage: 1.4 MILLIGRAM, QD
     Route: 042
     Dates: start: 20191116, end: 20220828
  2. TEDUGLUTIDE [Suspect]
     Active Substance: TEDUGLUTIDE
     Indication: Short-bowel syndrome
     Dosage: 1.4 MILLIGRAM, QD
     Route: 042
     Dates: start: 20191116, end: 20220828
  3. TEDUGLUTIDE [Suspect]
     Active Substance: TEDUGLUTIDE
     Indication: Short-bowel syndrome
     Dosage: 1.4 MILLIGRAM, QD
     Route: 042
     Dates: start: 20191116, end: 20220828
  4. TEDUGLUTIDE [Suspect]
     Active Substance: TEDUGLUTIDE
     Indication: Short-bowel syndrome
     Dosage: 1.4 MILLIGRAM, QD
     Route: 042
     Dates: start: 20191116, end: 20220828
  5. TEDUGLUTIDE [Suspect]
     Active Substance: TEDUGLUTIDE
     Dosage: 2 MILLIGRAM, QD
     Route: 042
     Dates: start: 20220829
  6. TEDUGLUTIDE [Suspect]
     Active Substance: TEDUGLUTIDE
     Dosage: 2 MILLIGRAM, QD
     Route: 042
     Dates: start: 20220829
  7. TEDUGLUTIDE [Suspect]
     Active Substance: TEDUGLUTIDE
     Dosage: 2 MILLIGRAM, QD
     Route: 042
     Dates: start: 20220829
  8. TEDUGLUTIDE [Suspect]
     Active Substance: TEDUGLUTIDE
     Dosage: 2 MILLIGRAM, QD
     Route: 042
     Dates: start: 20220829
  9. TAUROLIDINE [Concomitant]
     Active Substance: TAUROLIDINE
     Indication: Infection prophylaxis
     Dosage: 0.3 MILLILITER, QD
     Route: 042
     Dates: start: 201812
  10. AZITHROMYCIN [Concomitant]
     Active Substance: AZITHROMYCIN
     Dosage: 250 MILLIGRAM, BID
     Route: 048
     Dates: start: 20200609, end: 20200613
  11. SODIUM BICARBONATE [Concomitant]
     Active Substance: SODIUM BICARBONATE
     Indication: Blood bicarbonate decreased
     Dosage: 2 DOSAGE FORM, QD
     Route: 048
     Dates: start: 20181214
  12. URSODIOL [Concomitant]
     Active Substance: URSODIOL
     Indication: Cholelithiasis
     Dosage: 200.0 MILLIGRAM, BID
     Route: 048
     Dates: start: 20180306, end: 202006

REACTIONS (1)
  - Pyrexia [Recovered/Resolved]

NARRATIVE: CASE EVENT DATE: 20200530
